FAERS Safety Report 5719357-4 (Version None)
Quarter: 2008Q2

REPORT INFORMATION
  Report Type: 
  Country: None (occurrence: None)
  Receive Date: 20080428
  Receipt Date: 20080421
  Transmission Date: 20081010
  Serious: Yes (Hospitalization)
  Sender: FDA-Public Use
  Company Number: CA-BRISTOL-MYERS SQUIBB COMPANY-14126056

PATIENT
  Age: 70 Year
  Sex: Female

DRUGS (5)
  1. SPRYCEL [Suspect]
     Indication: CHRONIC MYELOID LEUKAEMIA
     Route: 048
     Dates: start: 20080215, end: 20080315
  2. LIPITOR [Concomitant]
  3. CELEBREX [Concomitant]
  4. LASIX [Concomitant]
  5. FENOFIBRATE [Concomitant]

REACTIONS (1)
  - LEUKOENCEPHALOPATHY [None]
